FAERS Safety Report 7710443-6 (Version None)
Quarter: 2011Q3

REPORT INFORMATION
  Report Type: 
  Country: None (occurrence: None)
  Receive Date: 20110825
  Receipt Date: 20110810
  Transmission Date: 20111222
  Serious: Yes (Hospitalization, Other)
  Sender: FDA-Public Use
  Company Number: US-ELI_LILLY_AND_COMPANY-US201107006152

PATIENT
  Sex: Female

DRUGS (17)
  1. LIPITOR [Concomitant]
  2. VITAMIN D [Concomitant]
  3. SINGULAIR [Concomitant]
  4. ASPIRIN [Concomitant]
  5. SYNTHROID [Concomitant]
  6. VITAMIN B [Concomitant]
  7. FOSAMAX [Concomitant]
  8. FORTEO [Suspect]
     Dosage: 20 UG, QD
     Route: 065
  9. ALLEGRA [Concomitant]
  10. MULTI-VITAMIN [Concomitant]
  11. ASCORBIC ACID [Concomitant]
  12. TOPROL-XL [Concomitant]
  13. FLONASE [Concomitant]
  14. NORVASC [Concomitant]
  15. FORTEO [Suspect]
     Indication: OSTEOPOROSIS
     Dosage: 20 UG, QD
     Route: 065
     Dates: start: 20091201
  16. PLAVIX [Concomitant]
  17. CALCIUM WITH VITAMIN D [Concomitant]

REACTIONS (3)
  - OSTEONECROSIS OF JAW [None]
  - KNEE ARTHROPLASTY [None]
  - PATELLA FRACTURE [None]
